FAERS Safety Report 14748238 (Version 2)
Quarter: 2018Q2

REPORT INFORMATION
  Report Type: Report from Study
  Country: US (occurrence: US)
  Receive Date: 20180411
  Receipt Date: 20180419
  Transmission Date: 20180711
  Serious: Yes (Hospitalization, Other)
  Sender: FDA-Public Use
  Company Number: US-GILEAD-2018-0326109

PATIENT
  Age: 57 Year
  Sex: Male
  Weight: 91.16 kg

DRUGS (11)
  1. COUMADIN [Concomitant]
     Active Substance: WARFARIN SODIUM
     Indication: PULMONARY EMBOLISM
     Dosage: 5 MG, UNK
     Route: 048
     Dates: start: 20170127
  2. IDELALISIB [Suspect]
     Active Substance: IDELALISIB
     Indication: DISEASE PROGRESSION
     Dosage: 150 MG, BID
     Route: 048
     Dates: start: 201508, end: 20160318
  3. IMMUNGLOBULIN (IMMUNOGLOBULIN HUMAN NORMAL) [Concomitant]
     Active Substance: HUMAN IMMUNOGLOBULIN G
     Indication: HYPOGAMMAGLOBULINAEMIA
     Dosage: UNK, Q MONTH,
     Route: 042
     Dates: start: 20180227
  4. PROCHLORPERAZINE MALEATE. [Concomitant]
     Active Substance: PROCHLORPERAZINE MALEATE
     Dosage: 10 MG, UNK
     Route: 065
  5. IDELALISIB [Suspect]
     Active Substance: IDELALISIB
     Indication: CHRONIC LYMPHOCYTIC LEUKAEMIA
     Dosage: 150 UNK, UNK
     Route: 048
     Dates: start: 20160401, end: 20180227
  6. COUMADIN [Concomitant]
     Active Substance: WARFARIN SODIUM
     Dosage: 5 MG, UNK
     Route: 048
     Dates: start: 20161127
  7. COUMADIN [Concomitant]
     Active Substance: WARFARIN SODIUM
     Indication: VENA CAVA THROMBOSIS
     Dosage: 2.5 2X/WEEK, UNK, UNK
  8. LEVOTHYROXINE. [Concomitant]
     Active Substance: LEVOTHYROXINE
     Indication: HYPOTHYROIDISM
     Dosage: 25 UG, UNK
     Route: 048
     Dates: start: 20110913
  9. BACTRIM DS [Concomitant]
     Active Substance: SULFAMETHOXAZOLE\TRIMETHOPRIM
     Indication: ANTIFUNGAL PROPHYLAXIS
     Dosage: 1 DF, Q3DAYS
     Route: 065
     Dates: start: 20160510
  10. RITUXAN [Concomitant]
     Active Substance: RITUXIMAB
     Indication: CHRONIC LYMPHOCYTIC LEUKAEMIA
     Dosage: UNK
     Dates: start: 201508, end: 20160318
  11. AMLODIPINE [Concomitant]
     Active Substance: AMLODIPINE BESYLATE
     Indication: HYPERTENSION
     Dosage: 5 MG, UNK
     Route: 048
     Dates: start: 20110627

REACTIONS (18)
  - Sinusitis [Unknown]
  - Meningioma [Not Recovered/Not Resolved]
  - Hypoaesthesia oral [Not Recovered/Not Resolved]
  - Vena cava thrombosis [Unknown]
  - Disease progression [Not Recovered/Not Resolved]
  - Diverticulitis [Unknown]
  - Productive cough [Recovering/Resolving]
  - Agranulocytosis [Not Recovered/Not Resolved]
  - Diarrhoea [Recovered/Resolved]
  - Anal fissure [Not Recovered/Not Resolved]
  - Haemorrhoids [Unknown]
  - Asthenia [Unknown]
  - Night sweats [Not Recovered/Not Resolved]
  - Tendon rupture [Unknown]
  - Nausea [Recovered/Resolved]
  - Proctalgia [Not Recovered/Not Resolved]
  - Febrile neutropenia [Unknown]
  - Fatigue [Not Recovered/Not Resolved]

NARRATIVE: CASE EVENT DATE: 201610
